FAERS Safety Report 9536748 (Version 1)
Quarter: 2013Q3

REPORT INFORMATION
  Report Type: Spontaneous
  Country: US (occurrence: US)
  Receive Date: 20130919
  Receipt Date: 20130919
  Transmission Date: 20140515
  Serious: Yes (Other)
  Sender: FDA-Public Use
  Company Number: US-SANOFI-AVENTIS-2013SA090504

PATIENT
  Age: 68 Year
  Sex: Male
  Weight: 113 kg

DRUGS (8)
  1. MULTAQ [Suspect]
     Route: 065
  2. AMIODARONE [Suspect]
     Indication: ATRIAL FIBRILLATION
     Route: 065
  3. TRAVATAN [Concomitant]
  4. ALL OTHER THERAPEUTIC PRODUCTS [Concomitant]
  5. METFORMIN [Concomitant]
  6. CARVEDILOL [Concomitant]
  7. ATORVASTATIN [Concomitant]
  8. ASPIRIN [Concomitant]

REACTIONS (3)
  - Optic neuropathy [Not Recovered/Not Resolved]
  - Blindness [Not Recovered/Not Resolved]
  - Glaucoma [Unknown]
